FAERS Safety Report 26074645 (Version 1)
Quarter: 2025Q4

REPORT INFORMATION
  Report Type: Spontaneous
  Country: US (occurrence: None)
  Receive Date: 20251120
  Receipt Date: 20251120
  Transmission Date: 20260118
  Serious: Yes (Disabling, Other)
  Sender: FDA-CTU
  Company Number: None

PATIENT
  Age: 76 Year
  Sex: Female
  Weight: 63.5 kg

DRUGS (11)
  1. METRONIDAZOLE [Suspect]
     Active Substance: METRONIDAZOLE
     Indication: Vaginal infection
     Dosage: FREQUENCY : TWICE A DAY;?
     Route: 048
     Dates: start: 20240316, end: 20240320
  2. Luiteio 20 mg daily [Concomitant]
  3. Glucusaminc 750 MG [Concomitant]
  4. Chrodrotin 600 MG [Concomitant]
  5. Tumeric Curcumin I000 MG [Concomitant]
  6. D3 50MG [Concomitant]
  7. DIETARY SUPPLEMENT\PROBIOTICS [Concomitant]
     Active Substance: DIETARY SUPPLEMENT\PROBIOTICS NOS
  8. Melatonin 3 MG [Concomitant]
  9. Calcium 630 MG [Concomitant]
  10. LEVOTHYROXINE [Concomitant]
     Active Substance: LEVOTHYROXINE
  11. CLONIDINE HYDROCHLORIDE [Concomitant]
     Active Substance: CLONIDINE HYDROCHLORIDE

REACTIONS (10)
  - Vulvovaginal burning sensation [None]
  - Chest pain [None]
  - Burning sensation [None]
  - Small fibre neuropathy [None]
  - Muscular weakness [None]
  - Decreased activity [None]
  - Anxiety [None]
  - Neuralgia [None]
  - Sensory disturbance [None]
  - Activities of daily living assessment [None]

NARRATIVE: CASE EVENT DATE: 20240116
